FAERS Safety Report 4437609-5 (Version None)
Quarter: 2004Q3

REPORT INFORMATION
  Report Type: 
  Country: None (occurrence: None)
  Receive Date: 20040827
  Receipt Date: 20040816
  Transmission Date: 20050211
  Serious: Yes (Hospitalization)
  Sender: FDA-Public Use
  Company Number: 2004229308SE

PATIENT
  Age: 62 Year
  Sex: Female

DRUGS (12)
  1. PREDNISOLONE [Suspect]
     Indication: RHEUMATOID ARTHRITIS
     Dosage: 3.7 MG, QD, ORAL
     Route: 048
  2. ACTRAPID (INSULIN) [Concomitant]
  3. CALICHEW-D3 [Concomitant]
  4. SULFASALAZINE [Concomitant]
  5. ACETAMINOPHEN [Concomitant]
  6. MINIFOM (DIMETICONE, ACTIVATED) [Concomitant]
  7. EMCONCOR (BISOPROLOL) [Concomitant]
  8. ZOCORD (SIMVASTATIN) [Concomitant]
  9. NORVASC [Concomitant]
  10. NOBLIGAN (TRAMADOL HYDROCHLORIDE) [Concomitant]
  11. ATACAND [Concomitant]
  12. LOSEC [Concomitant]

REACTIONS (3)
  - ANAEMIA [None]
  - DIVERTICULUM INTESTINAL [None]
  - RECTAL HAEMORRHAGE [None]
